FAERS Safety Report 6619376-X (Version None)
Quarter: 2010Q1

REPORT INFORMATION
  Report Type: 
  Country: None (occurrence: None)
  Receive Date: 20100309
  Receipt Date: 20100226
  Transmission Date: 20100710
  Serious: Yes (Other)
  Sender: FDA-Public Use
  Company Number: ES-RANBAXY-2010RR-30667

PATIENT
  Age: 67 Year
  Sex: Male

DRUGS (2)
  1. DILTIAZEM HCL [Suspect]
     Indication: CHEST PAIN
  2. NITROGLYCERIN [Concomitant]
     Indication: CHEST PAIN
     Route: 062

REACTIONS (1)
  - ACUTE GENERALISED EXANTHEMATOUS PUSTULOSIS [None]
